FAERS Safety Report 9791238 (Version 1)
Quarter: 2014Q1

REPORT INFORMATION
  Report Type: Spontaneous
  Country: IL (occurrence: IL)
  Receive Date: 20140101
  Receipt Date: 20140101
  Transmission Date: 20141002
  Serious: Yes (Other)
  Sender: FDA-Public Use
  Company Number: IL-ROCHE-1324599

PATIENT
  Age: 52 Year
  Sex: Female

DRUGS (2)
  1. BEVACIZUMAB [Suspect]
     Indication: DIABETIC RETINOPATHY
     Dosage: 0.125 MG/0.05ML
     Route: 050
  2. BEVACIZUMAB [Suspect]
     Indication: CYSTOID MACULAR OEDEMA

REACTIONS (2)
  - Conjunctival granuloma [Recovered/Resolved]
  - Off label use [Unknown]
